FAERS Safety Report 6602443-4 (Version None)
Quarter: 2010Q1

REPORT INFORMATION
  Report Type: 
  Country: None (occurrence: None)
  Receive Date: 20100225
  Receipt Date: 20100219
  Transmission Date: 20100710
  Serious: Yes (Hospitalization)
  Sender: FDA-Public Use
  Company Number: DK-ABBOTT-10P-044-0627578-00

PATIENT
  Sex: Male
  Weight: 120 kg

DRUGS (14)
  1. REDUCTIL 10MG [Suspect]
     Indication: OVERWEIGHT
     Route: 048
     Dates: start: 20090201, end: 20091218
  2. ENALAPRIL MALEATE [Concomitant]
     Indication: DRUG USE FOR UNKNOWN INDICATION
     Route: 048
     Dates: start: 20090501
  3. ACETYLSALICYLIC ACID [Concomitant]
     Indication: DRUG USE FOR UNKNOWN INDICATION
     Route: 048
     Dates: start: 20060101
  4. SPIRONOLACTONE [Concomitant]
     Indication: DRUG USE FOR UNKNOWN INDICATION
     Route: 048
     Dates: start: 20090914
  5. ROSIGLITAZONE [Concomitant]
     Indication: DRUG USE FOR UNKNOWN INDICATION
     Route: 048
     Dates: start: 20080501
  6. ALLOPURINOL [Concomitant]
     Indication: DRUG USE FOR UNKNOWN INDICATION
     Dosage: PULSED TREATMENT. LATEST DISPENSING 14 SEP 2009
     Route: 048
     Dates: start: 20080521
  7. OMEPRAZOLE [Concomitant]
     Indication: DRUG USE FOR UNKNOWN INDICATION
     Dosage: POSSIBILITY OF PAUSE IN THE TREATMENT
     Route: 048
     Dates: start: 20090407
  8. PARACETAMOL [Concomitant]
     Indication: DRUG USE FOR UNKNOWN INDICATION
     Dosage: 1-2 TABLETS 3-4 TIMES A DAY
     Route: 048
     Dates: start: 20090401
  9. FUROSEMIDE [Concomitant]
     Indication: DRUG USE FOR UNKNOWN INDICATION
     Route: 048
     Dates: start: 20090601
  10. SIMVASTATIN [Concomitant]
     Indication: DRUG USE FOR UNKNOWN INDICATION
     Dosage: 1 TABLET AT NIGHTTIME. PREVIOUSLY OTHER GENERICS
     Route: 048
     Dates: start: 20090701
  11. DICLOFENAC [Concomitant]
     Indication: DRUG USE FOR UNKNOWN INDICATION
     Route: 048
     Dates: start: 20091117, end: 20100101
  12. MARAVAN [Concomitant]
     Indication: DRUG USE FOR UNKNOWN INDICATION
  13. DABIGATRAN [Concomitant]
     Indication: DRUG USE FOR UNKNOWN INDICATION
  14. FRAGMIN [Concomitant]
     Indication: DRUG USE FOR UNKNOWN INDICATION

REACTIONS (2)
  - DEEP VEIN THROMBOSIS [None]
  - PULMONARY EMBOLISM [None]
